FAERS Safety Report 5001581-X (Version None)
Quarter: 2006Q2

REPORT INFORMATION
  Report Type: 
  Country: None (occurrence: None)
  Receive Date: 20060515
  Receipt Date: 20060502
  Transmission Date: 20061013
  Serious: No
  Sender: FDA-Public Use
  Company Number: 2006UW08522

PATIENT
  Age: 44 Year
  Sex: Male
  Weight: 92.5 kg

DRUGS (4)
  1. SEROQUEL [Suspect]
     Indication: SCHIZOPHRENIA
     Route: 048
     Dates: start: 20050901
  2. LOPID [Concomitant]
  3. FERROUS SULFATE TAB [Concomitant]
  4. PRILOSEC [Concomitant]

REACTIONS (1)
  - AGRANULOCYTOSIS [None]
